FAERS Safety Report 18871030 (Version 1)
Quarter: 2021Q1

REPORT INFORMATION
  Report Type: Spontaneous
  Country: US (occurrence: US)
  Receive Date: 20210209
  Receipt Date: 20210209
  Transmission Date: 20210420
  Serious: No
  Sender: FDA-Public Use
  Company Number: None

PATIENT
  Age: 30 Year
  Sex: Female

DRUGS (1)
  1. +PREDNISONE TAB 20MG [Suspect]
     Active Substance: PREDNISONE
     Route: 048
     Dates: start: 202101

REACTIONS (5)
  - Dyspepsia [None]
  - Insomnia [None]
  - Feeling hot [None]
  - Increased appetite [None]
  - Acne [None]

NARRATIVE: CASE EVENT DATE: 20210209
